FAERS Safety Report 12573560 (Version 1)
Quarter: 2016Q3

REPORT INFORMATION
  Report Type: Spontaneous
  Country: US (occurrence: None)
  Receive Date: 20160719
  Receipt Date: 20160719
  Transmission Date: 20161109
  Serious: Yes (Life-Threatening)
  Sender: FDA-Public Use
  Company Number: None

PATIENT
  Age: 46 Year
  Sex: Female
  Weight: 84.82 kg

DRUGS (5)
  1. MELOXICAM, MELOXICAM ORAL TABLET 15MG, MOBIC [Suspect]
     Active Substance: MELOXICAM
     Indication: SWELLING
     Dosage: 2014 TO 06-18-2017
     Route: 048
     Dates: start: 2014
  2. OMEPRAZOLE. [Suspect]
     Active Substance: OMEPRAZOLE
  3. MELOXICAM, MELOXICAM ORAL TABLET 15MG, MOBIC [Suspect]
     Active Substance: MELOXICAM
     Indication: PAIN
     Dosage: 2014 TO 06-18-2017
     Route: 048
     Dates: start: 2014
  4. MELOXICAM, MELOXICAM ORAL TABLET 15MG, MOBIC [Suspect]
     Active Substance: MELOXICAM
     Indication: INFLAMMATION
     Dosage: 2014 TO 06-18-2017
     Route: 048
     Dates: start: 2014
  5. LOSARTAN AND HYDROCHLOROTHIAZIDE [Suspect]
     Active Substance: HYDROCHLOROTHIAZIDE\LOSARTAN POTASSIUM

REACTIONS (10)
  - Malaise [None]
  - Abdominal pain upper [None]
  - Feeling hot [None]
  - Speech disorder [None]
  - Headache [None]
  - Loss of consciousness [None]
  - Respiratory rate decreased [None]
  - Hyperhidrosis [None]
  - Liver function test increased [None]
  - Blood potassium increased [None]

NARRATIVE: CASE EVENT DATE: 20160618
